FAERS Safety Report 4518439-2 (Version None)
Quarter: 2004Q4

REPORT INFORMATION
  Report Type: 
  Country: None (occurrence: None)
  Receive Date: 20041202
  Receipt Date: 20041122
  Transmission Date: 20050328
  Serious: Yes (Hospitalization)
  Sender: FDA-Public Use
  Company Number: 6011743

PATIENT
  Age: 79 Year
  Sex: Female

DRUGS (2)
  1. DETENSIEL (10 MG, TABLETS) (BISOPROLOL FUMARATE) [Suspect]
     Indication: ESSENTIAL HYPERTENSION
     Dosage: 10 MG (10 MG, 1 IN 1 D) ORAL
     Route: 048
     Dates: end: 20000215
  2. PRACTAZIN (SPIRONOLACTONE, ALTIZIDE) [Concomitant]

REACTIONS (2)
  - RED BLOOD CELL SEDIMENTATION RATE INCREASED [None]
  - RETROPERITONEAL FIBROSIS [None]
